FAERS Safety Report 13045734 (Version 1)
Quarter: 2016Q4

REPORT INFORMATION
  Report Type: Spontaneous
  Country: US (occurrence: US)
  Receive Date: 20161220
  Receipt Date: 20161220
  Transmission Date: 20170207
  Serious: Yes (Disabling)
  Sender: FDA-Public Use
  Company Number: None

PATIENT
  Age: 61 Year
  Sex: Female
  Weight: 118.04 kg

DRUGS (14)
  1. WARFAIN [Concomitant]
  2. TYLENOL [Concomitant]
     Active Substance: ACETAMINOPHEN
  3. LOMTIS [Concomitant]
  4. C-PAP [Concomitant]
  5. AMLODIPINE [Concomitant]
     Active Substance: AMLODIPINE BESYLATE
  6. ZOPODEM [Concomitant]
  7. SIMVASTATIN. [Concomitant]
     Active Substance: SIMVASTATIN
  8. SYMBICORT [Suspect]
     Active Substance: BUDESONIDE\FORMOTEROL FUMARATE DIHYDRATE
     Indication: CHRONIC OBSTRUCTIVE PULMONARY DISEASE
     Dosage: 2 PUFFS 1X AM MOUTH
     Route: 048
     Dates: start: 20161012, end: 20161110
  9. LEVOTHYROXINE. [Concomitant]
     Active Substance: LEVOTHYROXINE
  10. METFORMIN [Concomitant]
     Active Substance: METFORMIN HYDROCHLORIDE
  11. VITAMIN/GENERIC [Concomitant]
  12. FISH OIL [Concomitant]
     Active Substance: FISH OIL
  13. LORSARTAN [Concomitant]
  14. MELOXICAM. [Concomitant]
     Active Substance: MELOXICAM

REACTIONS (5)
  - Gingival bleeding [None]
  - Dysphonia [None]
  - Mastication disorder [None]
  - Candida infection [None]
  - Oral pain [None]

NARRATIVE: CASE EVENT DATE: 20161012
